FAERS Safety Report 10960757 (Version 4)
Quarter: 2015Q4

REPORT INFORMATION
  Report Type: Spontaneous
  Country: GB (occurrence: GB)
  Receive Date: 20150327
  Receipt Date: 20151019
  Transmission Date: 20160304
  Serious: Yes (Death, Hospitalization, Other)
  Sender: FDA-Public Use
  Company Number: GB-PFIZER INC-2015108664

PATIENT
  Age: 67 Year
  Sex: Male

DRUGS (1)
  1. XALKORI [Suspect]
     Active Substance: CRIZOTINIB
     Indication: LUNG ADENOCARCINOMA
     Dosage: 3 CYCLES
     Dates: start: 201310

REACTIONS (11)
  - Abdominal distension [Unknown]
  - Malaise [Unknown]
  - Hypoxia [Unknown]
  - Visual impairment [Unknown]
  - Interstitial lung disease [Unknown]
  - Constipation [Unknown]
  - Infection [Unknown]
  - Lung adenocarcinoma [Fatal]
  - Dyspnoea [Unknown]
  - Urinary hesitation [Unknown]
  - Disease progression [Fatal]

NARRATIVE: CASE EVENT DATE: 201312
